FAERS Safety Report 15004605 (Version 1)
Quarter: 2018Q2

REPORT INFORMATION
  Report Type: Spontaneous
  Country: US (occurrence: US)
  Receive Date: 20180524
  Receipt Date: 20180524
  Transmission Date: 20180711
  Serious: Yes (Other)
  Sender: FDA-Public Use
  Company Number: None

PATIENT
  Age: 82 Year
  Sex: Male
  Weight: 68.4 kg

DRUGS (29)
  1. WARFARIN SODIUM 6MG [Suspect]
     Active Substance: WARFARIN SODIUM
     Indication: ATRIAL FIBRILLATION
     Dosage: ?          QUANTITY:90 DF DOSAGE FORM;?
     Route: 048
     Dates: start: 20180517, end: 20180522
  2. WARFARIN SODIUM 6MG [Suspect]
     Active Substance: WARFARIN SODIUM
     Indication: CEREBROVASCULAR ACCIDENT
     Dosage: ?          QUANTITY:90 DF DOSAGE FORM;?
     Route: 048
     Dates: start: 20180517, end: 20180522
  3. LANTANPROST [Concomitant]
  4. VITAMIN D [Concomitant]
     Active Substance: CHOLECALCIFEROL
  5. WARFARIN SODIUM 5MG [Suspect]
     Active Substance: WARFARIN SODIUM
     Indication: HYPERTENSION
     Dosage: ?          QUANTITY:90 DF DOSAGE FORM;?
     Route: 048
     Dates: start: 20180501, end: 20180516
  6. DORZOLOMIDE [Concomitant]
     Active Substance: DORZOLAMIDE
  7. WARFARIN SODIUM 5MG [Suspect]
     Active Substance: WARFARIN SODIUM
     Indication: CEREBROVASCULAR ACCIDENT
     Dosage: ?          QUANTITY:90 DF DOSAGE FORM;?
     Route: 048
     Dates: start: 20180501, end: 20180516
  8. NORVASC [Concomitant]
     Active Substance: AMLODIPINE BESYLATE
  9. ADVAIR HFA [Concomitant]
     Active Substance: FLUTICASONE PROPIONATE\SALMETEROL XINAFOATE
  10. EYE DROPS [Concomitant]
     Active Substance: UNSPECIFIED INGREDIENT
  11. TIMOLOL. [Concomitant]
     Active Substance: TIMOLOL
  12. FISH OIL [Concomitant]
     Active Substance: FISH OIL
  13. WARFARIN SODIUM 5MG [Suspect]
     Active Substance: WARFARIN SODIUM
     Indication: ATRIAL FIBRILLATION
     Dosage: ?          QUANTITY:90 DF DOSAGE FORM;?
     Route: 048
     Dates: start: 20180501, end: 20180516
  14. PRAVASTATIN. [Concomitant]
     Active Substance: PRAVASTATIN
  15. METOPROLOL. [Concomitant]
     Active Substance: METOPROLOL
  16. CYCLOPENTLATE [Concomitant]
  17. BRIMONDINE [Concomitant]
  18. ZETIA [Concomitant]
     Active Substance: EZETIMIBE
  19. RANTINIDE [Concomitant]
  20. ALLOPURINOL. [Concomitant]
     Active Substance: ALLOPURINOL
  21. PREDNISOLONE. [Concomitant]
     Active Substance: PREDNISOLONE
  22. ASPIRIN. [Concomitant]
     Active Substance: ASPIRIN
  23. MULTI VITAMIN [Concomitant]
     Active Substance: VITAMINS
  24. VITAMIN B COMPLEX [Concomitant]
     Active Substance: CYANOCOBALAMIN\DEXPANTHENOL\NIACINAMIDE\PYRIDOXINE HYDROCHLORIDE\RIBOFLAVIN 5^-PHOSPHATE SODIUM\THIAMINE HYDROCHLORIDE\VITAMIN B COMPLEX
  25. WARFARIN SODIUM 6MG [Suspect]
     Active Substance: WARFARIN SODIUM
     Indication: HYPERTENSION
     Dosage: ?          QUANTITY:90 DF DOSAGE FORM;?
     Route: 048
     Dates: start: 20180517, end: 20180522
  26. WARFARIN SODIUM 6MG [Suspect]
     Active Substance: WARFARIN SODIUM
     Indication: BLOOD CHOLESTEROL INCREASED
     Dosage: ?          QUANTITY:90 DF DOSAGE FORM;?
     Route: 048
     Dates: start: 20180517, end: 20180522
  27. WARFARIN [Concomitant]
     Active Substance: WARFARIN
  28. LOSARTAN. [Concomitant]
     Active Substance: LOSARTAN
  29. WELCHOL [Concomitant]
     Active Substance: COLESEVELAM HYDROCHLORIDE

REACTIONS (1)
  - International normalised ratio decreased [None]

NARRATIVE: CASE EVENT DATE: 20180523
